FAERS Safety Report 9699739 (Version 5)
Quarter: 2014Q3

REPORT INFORMATION
  Report Type: Spontaneous
  Country: JP (occurrence: JP)
  Receive Date: 20131120
  Receipt Date: 20140701
  Transmission Date: 20150326
  Serious: Yes (Other)
  Sender: FDA-Public Use
  Company Number: JP-ABBVIE-13P-087-1169195-00

PATIENT
  Age: 34 Year
  Sex: Female

DRUGS (4)
  1. HUMIRA [Suspect]
     Active Substance: ADALIMUMAB
     Indication: PSORIASIS
     Route: 058
     Dates: start: 20101027, end: 20101027
  2. MAXACALCITOL [Concomitant]
     Active Substance: MAXACALCITOL
     Indication: PSORIASIS
     Dosage: Q.S.
     Route: 061
     Dates: start: 20070403
  3. HUMIRA [Suspect]
     Active Substance: ADALIMUMAB
     Dates: end: 20131025
  4. DEPRODONE PROPIONATE [Concomitant]
     Active Substance: DEPRODONE PROPIONATE
     Indication: PSORIASIS
     Dosage: Q.S.
     Route: 061
     Dates: start: 20120717

REACTIONS (4)
  - Pulmonary tuberculosis [Recovered/Resolved]
  - Pulmonary mass [Unknown]
  - Mediastinum neoplasm [Unknown]
  - Lymphadenopathy [Unknown]

NARRATIVE: CASE EVENT DATE: 20131108
